FAERS Safety Report 6846284-1 (Version None)
Quarter: 2010Q3

REPORT INFORMATION
  Report Type: 
  Country: None (occurrence: None)
  Receive Date: 20100715
  Receipt Date: 20070917
  Transmission Date: 20110219
  Serious: No
  Sender: FDA-Public Use
  Company Number: US-PFIZER INC-2007078371

PATIENT
  Sex: Male
  Weight: 77.272 kg

DRUGS (8)
  1. CHANTIX [Suspect]
     Indication: SMOKING CESSATION THERAPY
     Dates: start: 20070801
  2. GLYBURIDE [Concomitant]
  3. AVALIDE [Concomitant]
  4. PLAVIX [Concomitant]
  5. DIGOXIN [Concomitant]
  6. METFORMIN HCL [Concomitant]
  7. COREG [Concomitant]
  8. VYTORIN [Concomitant]

REACTIONS (2)
  - DECREASED APPETITE [None]
  - FEELING ABNORMAL [None]
